FAERS Safety Report 22993714 (Version 2)
Quarter: 2024Q1

REPORT INFORMATION
  Report Type: Spontaneous
  Country: US (occurrence: US)
  Receive Date: 20230927
  Receipt Date: 20240201
  Transmission Date: 20240409
  Serious: Yes (Other)
  Sender: FDA-Public Use
  Company Number: US-BRISTOL-MYERS SQUIBB COMPANY-2023-136247

PATIENT
  Age: 74 Year
  Sex: Male
  Weight: 96.16 kg

DRUGS (3)
  1. POMALYST [Suspect]
     Active Substance: POMALIDOMIDE
     Indication: Plasma cell myeloma
     Dosage: 21D ON W 14D OFF
     Route: 048
     Dates: start: 20230714
  2. POMALYST [Suspect]
     Active Substance: POMALIDOMIDE
     Indication: Plasma cell myeloma in remission
     Route: 048
     Dates: start: 202311
  3. POMALYST [Suspect]
     Active Substance: POMALIDOMIDE
     Dates: start: 20240122

REACTIONS (9)
  - Blood creatinine increased [Recovering/Resolving]
  - Atrial fibrillation [Recovering/Resolving]
  - Pyrexia [Recovering/Resolving]
  - Cough [Recovering/Resolving]
  - Pancytopenia [Recovering/Resolving]
  - Fatigue [Recovering/Resolving]
  - Blood glucose increased [Recovering/Resolving]
  - Off label use [Unknown]
  - Rash pruritic [Unknown]

NARRATIVE: CASE EVENT DATE: 20230905
